FAERS Safety Report 10717944 (Version 1)
Quarter: 2015Q1

REPORT INFORMATION
  Report Type: Spontaneous
  Country: IT (occurrence: IT)
  Receive Date: 20150116
  Receipt Date: 20150116
  Transmission Date: 20150721
  Serious: Yes (Hospitalization)
  Sender: FDA-Public Use
  Company Number: IT-ASTRAZENECA-2015SE03298

PATIENT
  Age: 18773 Day
  Sex: Female

DRUGS (4)
  1. SEROQUEL [Suspect]
     Active Substance: QUETIAPINE FUMARATE
     Indication: DRUG ABUSE
     Route: 048
     Dates: start: 20150107, end: 20150107
  2. FLUVOXAMINE [Concomitant]
     Active Substance: FLUVOXAMINE
  3. NORITREN (NORTRIPTYLINE) [Suspect]
     Active Substance: NORTRIPTYLINE
     Indication: DRUG ABUSE
     Route: 048
     Dates: start: 20150107, end: 20150107
  4. GABAPENTIN. [Concomitant]
     Active Substance: GABAPENTIN

REACTIONS (2)
  - Bradykinesia [Recovered/Resolved]
  - Drug abuse [Recovered/Resolved]

NARRATIVE: CASE EVENT DATE: 20150107
